FAERS Safety Report 12990556 (Version 1)
Quarter: 2016Q4

REPORT INFORMATION
  Report Type: Spontaneous
  Country: TW (occurrence: TW)
  Receive Date: 20161201
  Receipt Date: 20161201
  Transmission Date: 20170207
  Serious: Yes (Other)
  Sender: FDA-Public Use
  Company Number: PHHY2016TW160715

PATIENT
  Age: 25 Year
  Sex: Male

DRUGS (7)
  1. CEFTRIAXONE SANDOZ [Suspect]
     Active Substance: CEFTRIAXONE
     Dosage: 2 G, Q12H
     Route: 042
  2. SENNOSIDE A+B [Concomitant]
     Active Substance: SENNOSIDES A AND B
     Indication: PRODUCT USED FOR UNKNOWN INDICATION
     Dosage: 1 DF, UNK
     Route: 048
  3. TEICOPLANIN [Concomitant]
     Active Substance: TEICOPLANIN
     Indication: PRODUCT USED FOR UNKNOWN INDICATION
     Dosage: 600 MG, Q12H
     Route: 042
  4. CEFTRIAXONE SANDOZ [Suspect]
     Active Substance: CEFTRIAXONE
     Indication: ENDOCARDITIS
     Dosage: 2 G, QD
     Route: 042
  5. TEICOPLANIN [Concomitant]
     Active Substance: TEICOPLANIN
     Dosage: 400 MG, QN
     Route: 042
  6. VANCOMYCIN SANDOZ [Suspect]
     Active Substance: VANCOMYCIN
     Indication: ENDOCARDITIS
     Dosage: 1 G, Q12H
     Route: 042
  7. SENNOSIDE A+B [Concomitant]
     Active Substance: SENNOSIDES A AND B
     Dosage: 2 DF, QN
     Route: 048

REACTIONS (1)
  - Drug reaction with eosinophilia and systemic symptoms [Recovering/Resolving]
